FAERS Safety Report 4666271-1 (Version None)
Quarter: 2005Q2

REPORT INFORMATION
  Report Type: 
  Country: None (occurrence: None)
  Receive Date: 20050518
  Receipt Date: 20050518
  Transmission Date: 20051028
  Serious: Yes (Life-Threatening)
  Sender: FDA-Public Use
  Company Number: None

PATIENT
  Age: 84 Year
  Sex: Female

DRUGS (2)
  1. RISPERDAL [Suspect]
     Indication: DEMENTIA
     Dosage: 1 DAILY
  2. ASPIRIN [Concomitant]

REACTIONS (4)
  - ANOREXIA [None]
  - APHASIA [None]
  - LOWER GASTROINTESTINAL HAEMORRHAGE [None]
  - TRANSIENT ISCHAEMIC ATTACK [None]
